FAERS Safety Report 18265147 (Version 1)
Quarter: 2020Q3

REPORT INFORMATION
  Report Type: Spontaneous
  Country: US (occurrence: US)
  Receive Date: 20200914
  Receipt Date: 20200914
  Transmission Date: 20201103
  Serious: Yes (Hospitalization, Other)
  Sender: FDA-Public Use
  Company Number: US-PURDUE-USA-2020-0166018

PATIENT
  Age: 31 Year
  Sex: Female

DRUGS (8)
  1. OXYCODONE HCL TABLETS (RHODES 91?490) [Suspect]
     Active Substance: OXYCODONE HYDROCHLORIDE
     Indication: PRODUCT USED FOR UNKNOWN INDICATION
     Dosage: UNK
     Route: 048
  2. OXYCODONE/ ACETAMINOPHEN TABLETS [Suspect]
     Active Substance: ACETAMINOPHEN\OXYCODONE HYDROCHLORIDE
     Indication: PRODUCT USED FOR UNKNOWN INDICATION
     Dosage: UNK
     Route: 048
  3. PERCOCET                           /00446701/ [Suspect]
     Active Substance: ACETAMINOPHEN\OXYCODONE HYDROCHLORIDE\OXYCODONE TEREPHTHALATE
     Indication: FIBROMYALGIA
     Dosage: UNK
     Route: 065
  4. PERCOCET                           /00446701/ [Suspect]
     Active Substance: ACETAMINOPHEN\OXYCODONE HYDROCHLORIDE\OXYCODONE TEREPHTHALATE
     Indication: BREAKTHROUGH PAIN
  5. SUBOXONE [Suspect]
     Active Substance: BUPRENORPHINE HYDROCHLORIDE\NALOXONE HYDROCHLORIDE
     Indication: MYALGIA
     Dosage: UNK
     Route: 065
  6. OXYCONTIN [Suspect]
     Active Substance: OXYCODONE HYDROCHLORIDE
     Indication: PAIN
     Dosage: UNK
     Route: 048
  7. SOMA [Suspect]
     Active Substance: CARISOPRODOL
     Indication: MUSCLE RELAXANT THERAPY
     Dosage: UNK
     Route: 065
  8. HYDROCODONE BITARTRATE AND ACETAMINOPHEN [Suspect]
     Active Substance: ACETAMINOPHEN\HYDROCODONE BITARTRATE
     Indication: PRODUCT USED FOR UNKNOWN INDICATION
     Dosage: UNK
     Route: 048

REACTIONS (29)
  - Mental impairment [Unknown]
  - Psychotic disorder [Unknown]
  - Neurological decompensation [Unknown]
  - Coma [Unknown]
  - Pain [Unknown]
  - Self esteem decreased [Unknown]
  - Craniocerebral injury [Unknown]
  - Jaw fracture [Unknown]
  - Myalgia [Not Recovered/Not Resolved]
  - Victim of sexual abuse [Unknown]
  - Drug withdrawal syndrome [Unknown]
  - Sexual dysfunction [Unknown]
  - Adverse drug reaction [Unknown]
  - Drug ineffective [Unknown]
  - Fear [Unknown]
  - Drug dependence [Unknown]
  - Anxiety [Unknown]
  - Overdose [Unknown]
  - Drug abuse [Unknown]
  - Poor dental condition [Unknown]
  - Emotional distress [Unknown]
  - Abnormal behaviour [Unknown]
  - Abulia [Unknown]
  - Facial bones fracture [Unknown]
  - Post-traumatic stress disorder [Unknown]
  - Depression [Unknown]
  - Amnesia [Unknown]
  - Unevaluable event [Unknown]
  - Exposure during pregnancy [Unknown]
